FAERS Safety Report 6115064-7 (Version None)
Quarter: 2009Q1

REPORT INFORMATION
  Report Type: 
  Country: None (occurrence: None)
  Receive Date: 20090313
  Receipt Date: 20090306
  Transmission Date: 20090719
  Serious: Yes (Congenital Anomaly, Other)
  Sender: FDA-Public Use
  Company Number: B0558960A

PATIENT
  Sex: Female
  Weight: 3.17 kg

DRUGS (6)
  1. LAMIVUDINE AND ZIDOVUDINE [Suspect]
  2. ATAZANAVIR SULFATE [Suspect]
     Dates: start: 20010101
  3. TENOFOVIR [Suspect]
  4. NORVIR [Suspect]
  5. DAPSONE [Suspect]
     Dates: start: 20010101
  6. ASASANTIN RETARD [Concomitant]

REACTIONS (2)
  - CONGENITAL HYDROCEPHALUS [None]
  - DRUG EXPOSURE DURING PREGNANCY [None]
